FAERS Safety Report 12187957 (Version 4)
Quarter: 2017Q3

REPORT INFORMATION
  Report Type: Report from Study
  Country: CN (occurrence: CN)
  Receive Date: 20160317
  Receipt Date: 20170918
  Transmission Date: 20171127
  Serious: Yes (Hospitalization)
  Sender: FDA-Public Use
  Company Number: PHHO2016CN003773

PATIENT
  Age: 75 Year
  Sex: Male
  Weight: 66.5 kg

DRUGS (12)
  1. WARFARIN [Suspect]
     Active Substance: WARFARIN
     Dosage: 3.125 MG AND 2.5 MG
     Route: 048
     Dates: start: 20170803
  2. CLOPIDOGREL [Concomitant]
     Active Substance: CLOPIDOGREL BISULFATE
     Indication: ANTICOAGULANT THERAPY
     Dosage: 75 MG, QD
     Route: 048
     Dates: start: 20160224
  3. VALSARTAN. [Suspect]
     Active Substance: VALSARTAN
     Indication: CARDIAC FAILURE CHRONIC
     Dosage: 160 MG, BID
     Route: 048
     Dates: start: 20150804, end: 20160223
  4. DIGOXIN. [Concomitant]
     Active Substance: DIGOXIN
     Indication: PROPHYLAXIS
     Dosage: 12.5 MG, BID
     Route: 048
     Dates: start: 20160224
  5. VALSARTAN. [Suspect]
     Active Substance: VALSARTAN
     Dosage: UNK
     Route: 065
     Dates: start: 20160507, end: 20170813
  6. ALPRAZOLAM. [Concomitant]
     Active Substance: ALPRAZOLAM
     Indication: ANXIETY
     Dosage: 0.4 MG, QN
     Route: 048
     Dates: start: 20170402, end: 20170813
  7. HYDROCHLOROTHIAZIDE. [Concomitant]
     Active Substance: HYDROCHLOROTHIAZIDE
     Indication: DYSURIA
     Dosage: 12.5 MG, BID
     Route: 048
     Dates: start: 20160224
  8. METOPROLOL TARTRATE. [Concomitant]
     Active Substance: METOPROLOL TARTRATE
     Indication: ATRIAL FIBRILLATION
     Dosage: 47.5 MG, QD
     Route: 048
     Dates: start: 20160402, end: 20170813
  9. SPIRONOLACTONE. [Concomitant]
     Active Substance: SPIRONOLACTONE
     Indication: DYSURIA
     Dosage: 20 MG, QD
     Route: 048
     Dates: start: 20170402, end: 20170813
  10. WARFARIN [Suspect]
     Active Substance: WARFARIN
     Indication: COAGULATION TIME
     Dosage: 3.125 MG, QD
     Route: 048
     Dates: start: 20150912, end: 20160223
  11. FUROSEMIDE. [Concomitant]
     Active Substance: FUROSEMIDE
     Indication: DYSURIA
     Dosage: 20 MG, QD
     Route: 048
     Dates: start: 20160402, end: 20170813
  12. ATORVASTATIN CALCIUM. [Concomitant]
     Active Substance: ATORVASTATIN CALCIUM
     Indication: HYPERLIPIDAEMIA
     Dosage: 20 MG, QD
     Route: 048
     Dates: start: 201503, end: 20160213

REACTIONS (3)
  - Chronic obstructive pulmonary disease [Recovering/Resolving]
  - Purpura [Recovering/Resolving]
  - Pulmonary hypertension [Not Recovered/Not Resolved]

NARRATIVE: CASE EVENT DATE: 20160214
